FAERS Safety Report 9822795 (Version 2)
Quarter: 2014Q2

REPORT INFORMATION
  Report Type: Report from Study
  Country: DE (occurrence: TR)
  Receive Date: 20140116
  Receipt Date: 20140430
  Transmission Date: 20141212
  Serious: Yes (Death, Hospitalization)
  Sender: FDA-Public Use
  Company Number: DE-ACTELION-A-NJ2014-93693

PATIENT
  Age: 40 Year
  Sex: Female

DRUGS (4)
  1. VENTAVIS [Suspect]
     Indication: PULMONARY HYPERTENSION
     Dosage: UNK, FREQUENCY 9X1
     Route: 055
     Dates: start: 20110117, end: 20140103
  2. SERETIDE DISCUS [Concomitant]
  3. FLIXOTIDE [Concomitant]
  4. COMBIVENT [Concomitant]

REACTIONS (2)
  - Dyspnoea [Fatal]
  - General physical health deterioration [Unknown]
